FAERS Safety Report 19572266 (Version 2)
Quarter: 2021Q3

REPORT INFORMATION
  Report Type: Report from Study
  Country: IN (occurrence: IN)
  Receive Date: 20210716
  Receipt Date: 20210827
  Transmission Date: 20211014
  Serious: Yes (Other)
  Sender: FDA-Public Use
  Company Number: IN-BRISTOL-MYERS SQUIBB COMPANY-BMS-2021-067983

PATIENT
  Age: 69 Year
  Sex: Male
  Weight: 72 kg

DRUGS (1)
  1. NIVOLUMAB [Suspect]
     Active Substance: NIVOLUMAB
     Indication: HEPATOCELLULAR CARCINOMA
     Dosage: 216 MILLIGRAM, Q2WK
     Route: 042
     Dates: start: 20210426

REACTIONS (6)
  - Erythema [Unknown]
  - Cellulitis [Unknown]
  - Oedema peripheral [Unknown]
  - Varicose vein [Unknown]
  - Drug ineffective [Unknown]
  - Groin pain [Unknown]

NARRATIVE: CASE EVENT DATE: 20210712
